FAERS Safety Report 25211877 (Version 1)
Quarter: 2025Q2

REPORT INFORMATION
  Report Type: Spontaneous
  Country: US (occurrence: US)
  Receive Date: 20250418
  Receipt Date: 20250418
  Transmission Date: 20250717
  Serious: Yes (Other)
  Sender: COOPERSURGICAL
  Company Number: US-COOPERSURGICAL, INC.-2025CPS002883

PATIENT
  Age: 44 Year
  Sex: Female
  Weight: 60.771 kg

DRUGS (5)
  1. PARAGARD T 380A [Suspect]
     Active Substance: COPPER
     Route: 015
     Dates: start: 20110421
  2. ZYRTEC [Concomitant]
     Active Substance: CETIRIZINE HYDROCHLORIDE
     Dates: start: 201502
  3. FLUTICASONE [Concomitant]
     Active Substance: FLUTICASONE
     Dates: start: 201502
  4. OLOPATADINE [Concomitant]
     Active Substance: OLOPATADINE
     Dates: start: 201502
  5. TOPIRAMATE [Concomitant]
     Active Substance: TOPIRAMATE
     Dates: start: 201901

REACTIONS (10)
  - Ovarian cyst [Unknown]
  - Adnexa uteri cyst [Unknown]
  - Hysterectomy [Recovered/Resolved]
  - Salpingectomy [Recovered/Resolved]
  - Device breakage [Recovered/Resolved]
  - Foreign body in reproductive tract [Recovered/Resolved]
  - Complication of device removal [Recovered/Resolved]
  - Mental disorder [Unknown]
  - Pelvic pain [Recovered/Resolved]
  - Infection [Recovered/Resolved]

NARRATIVE: CASE EVENT DATE: 20160101
